FAERS Safety Report 14098803 (Version 1)
Quarter: 2017Q4

REPORT INFORMATION
  Report Type: Spontaneous
  Country: TR (occurrence: TR)
  Receive Date: 20171017
  Receipt Date: 20171017
  Transmission Date: 20180321
  Serious: Yes (Hospitalization, Other)
  Sender: FDA-Public Use
  Company Number: PHHY2017TR147704

PATIENT
  Age: 16 Year
  Sex: Female

DRUGS (2)
  1. ISONIAZID. [Suspect]
     Active Substance: ISONIAZID
     Indication: ANTIBIOTIC PROPHYLAXIS
     Dosage: UNK
     Route: 065
  2. ISONIAZID. [Suspect]
     Active Substance: ISONIAZID
     Dosage: 20 G, UNK (20 PIECES OF 100 MG TABLETS)
     Route: 065

REACTIONS (8)
  - Intentional overdose [Unknown]
  - Rhabdomyolysis [Unknown]
  - Metabolic acidosis [Unknown]
  - Generalised tonic-clonic seizure [Recovered/Resolved]
  - Confusional state [Recovering/Resolving]
  - Toxicity to various agents [Unknown]
  - Suicide attempt [Unknown]
  - Inappropriate schedule of drug administration [Unknown]
